FAERS Safety Report 15267720 (Version 2)
Quarter: 2018Q3

REPORT INFORMATION
  Report Type: Spontaneous
  Country: JP (occurrence: JP)
  Receive Date: 20180811
  Receipt Date: 20180905
  Transmission Date: 20181010
  Serious: Yes (Death, Hospitalization, Other)
  Sender: FDA-Public Use
  Company Number: JP-SA-2018SA190795

PATIENT
  Age: 67 Year
  Sex: Male
  Weight: 68.5 kg

DRUGS (14)
  1. LEVOFOLINATE [CALCIUM LEVOFOLINATE] [Concomitant]
     Active Substance: LEVOLEUCOVORIN CALCIUM
     Indication: COLON CANCER
     Dosage: 340 MG, 1X
     Route: 041
  2. ZALTRAP [Suspect]
     Active Substance: ZIV-AFLIBERCEPT
     Dosage: 270 MG, QOW
     Route: 041
     Dates: start: 20180208, end: 20180628
  3. 5?FU [FLUOROURACIL] [Concomitant]
     Active Substance: FLUOROURACIL
     Indication: COLON CANCER
     Dosage: 680 MG, 1X
     Route: 065
  4. LEVOFOLINATE [CALCIUM LEVOFOLINATE] [Concomitant]
     Active Substance: LEVOLEUCOVORIN CALCIUM
     Dosage: 350 MG, QOW
     Route: 041
  5. 5?FU [FLUOROURACIL] [Concomitant]
     Active Substance: FLUOROURACIL
     Dosage: 4000 MG, 1X
     Route: 065
  6. EMEND [Concomitant]
     Active Substance: APREPITANT
     Indication: ANTIEMETIC SUPPORTIVE CARE
     Dosage: 125 MG, 1X
     Route: 048
  7. 5?FU [FLUOROURACIL] [Concomitant]
     Active Substance: FLUOROURACIL
     Dosage: 700 MG, QOW
     Route: 065
  8. 5?FU [FLUOROURACIL] [Concomitant]
     Active Substance: FLUOROURACIL
     Dosage: 4200 MG, QOW
     Route: 065
  9. IRINOTECAN HYDROCHLORIDE. [Concomitant]
     Active Substance: IRINOTECAN HYDROCHLORIDE
     Indication: COLON CANCER
     Dosage: 260 MG, QOW
     Route: 041
     Dates: start: 20180208, end: 20180628
  10. ALOXI [Concomitant]
     Active Substance: PALONOSETRON HYDROCHLORIDE
     Indication: ANTIEMETIC SUPPORTIVE CARE
     Dosage: 0.75 MG, QOW
     Route: 042
  11. EMEND [Concomitant]
     Active Substance: APREPITANT
     Dosage: 80 MG, QOW
     Route: 048
  12. IRINOTECAN HYDROCHLORIDE. [Concomitant]
     Active Substance: IRINOTECAN HYDROCHLORIDE
     Dosage: 250 MG, 1X
     Route: 041
     Dates: start: 20180125, end: 20180125
  13. DEXART [Concomitant]
     Active Substance: DEXAMETHASONE SODIUM PHOSPHATE
     Indication: PRODUCT USED FOR UNKNOWN INDICATION
     Dosage: 6.6 MG, QOW
     Route: 065
  14. ZALTRAP [Suspect]
     Active Substance: ZIV-AFLIBERCEPT
     Indication: COLON CANCER
     Dosage: 250 MG, 1X
     Route: 041
     Dates: start: 20180125, end: 20180125

REACTIONS (10)
  - Peritonitis [Fatal]
  - Gastrointestinal haemorrhage [Fatal]
  - Dizziness [Not Recovered/Not Resolved]
  - Haematemesis [Fatal]
  - Depressed level of consciousness [Fatal]
  - Abdominal pain upper [Fatal]
  - Pneumonia [Not Recovered/Not Resolved]
  - Dyspnoea [Fatal]
  - Melaena [Fatal]
  - Pyrexia [Not Recovered/Not Resolved]

NARRATIVE: CASE EVENT DATE: 20180702
